FAERS Safety Report 5270459-9 (Version None)
Quarter: 2007Q1

REPORT INFORMATION
  Report Type: 
  Country: None (occurrence: None)
  Receive Date: 20070315
  Receipt Date: 20070307
  Transmission Date: 20070707
  Serious: Yes (Death)
  Sender: FDA-Public Use
  Company Number: S07-USA-01063-01

PATIENT
  Age: 16 Year
  Sex: Female

DRUGS (4)
  1. LEXAPRO [Suspect]
     Indication: ANXIETY
     Dates: end: 20041101
  2. LEXAPRO [Suspect]
     Indication: DEPRESSION
     Dates: end: 20041101
  3. LEXAPRO [Suspect]
     Indication: ANXIETY
     Dates: start: 20041020
  4. LEXAPRO [Suspect]
     Indication: DEPRESSION
     Dates: start: 20041020

REACTIONS (9)
  - AKATHISIA [None]
  - COMPLETED SUICIDE [None]
  - DISCOMFORT [None]
  - EMOTIONAL DISTRESS [None]
  - GUN SHOT WOUND [None]
  - HEART INJURY [None]
  - ORAL INTAKE REDUCED [None]
  - PAIN [None]
  - PSYCHOTIC DISORDER [None]
